FAERS Safety Report 24805322 (Version 7)
Quarter: 2025Q1

REPORT INFORMATION
  Report Type: Spontaneous
  Country: US (occurrence: US)
  Receive Date: 20250103
  Receipt Date: 20250321
  Transmission Date: 20250409
  Serious: Yes (Other)
  Sender: DOMPE FARMACEUTICI
  Company Number: US-FARMAPROD-202501-0001

PATIENT
  Age: 95 Year
  Sex: Female

DRUGS (7)
  1. OXERVATE [Suspect]
     Active Substance: CENEGERMIN-BKBJ
     Indication: Neurotrophic keratopathy
     Route: 047
     Dates: start: 20241122
  2. MOXIFLOXACIN [Concomitant]
     Active Substance: MOXIFLOXACIN
  3. PF DORZOLAMIDE/TIMOLOL [Concomitant]
  4. LATANOPROST [Concomitant]
     Active Substance: LATANOPROST
  5. VABYSMO [Concomitant]
     Active Substance: FARICIMAB-SVOA
  6. REFRESH CLASSIC [Concomitant]
     Active Substance: POLYVINYL ALCOHOL\POVIDONE
  7. AUTOLOGOUS HUMAN CORNEAL EPITHELIAL CELLS [Concomitant]
     Active Substance: AUTOLOGOUS HUMAN CORNEAL EPITHELIAL CELLS

REACTIONS (5)
  - Hypopyon [Recovered/Resolved]
  - Hyphaema [Not Recovered/Not Resolved]
  - Corneal exfoliation [Unknown]
  - Corneal neovascularisation [Unknown]
  - Fall [Unknown]

NARRATIVE: CASE EVENT DATE: 20241211
